FAERS Safety Report 5986743-7 (Version None)
Quarter: 2008Q4

REPORT INFORMATION
  Report Type: 
  Country: None (occurrence: None)
  Receive Date: 20081209
  Receipt Date: 20081112
  Transmission Date: 20090506
  Serious: No
  Sender: FDA-Public Use
  Company Number: US-BAYER-200814390BCC

PATIENT
  Age: 56 Year
  Sex: Female
  Weight: 50 kg

DRUGS (8)
  1. ALEVE (CAPLET) [Suspect]
     Indication: BACK PAIN
     Dosage: AS USED: 220-220 MG  UNIT DOSE: 220 MG
     Route: 048
     Dates: start: 20081107
  2. LEVOTHYROXINE SODIUM [Concomitant]
  3. WELLBUTRIN XL [Concomitant]
  4. RETIN-A [Concomitant]
  5. METROGEL [Concomitant]
  6. FINACEA [Concomitant]
  7. FIORINAL [Concomitant]
  8. FIORICET [Concomitant]

REACTIONS (1)
  - BACK PAIN [None]
